FAERS Safety Report 4475333-3 (Version None)
Quarter: 2004Q4

REPORT INFORMATION
  Report Type: 
  Country: None (occurrence: None)
  Receive Date: 20041013
  Receipt Date: 20041013
  Transmission Date: 20050328
  Serious: Yes (Life-Threatening, Hospitalization, Other)
  Sender: FDA-Public Use
  Company Number: None

PATIENT
  Age: 33 Year
  Sex: Female
  Weight: 56 kg

DRUGS (8)
  1. DOFETILIDE [Suspect]
     Indication: ARRHYTHMIA
     Dosage: 500 MG PO Q12H
     Route: 048
     Dates: start: 20040602, end: 20040604
  2. COREG [Concomitant]
  3. CALCIUM [Concomitant]
  4. QUINAPRIL HCL [Concomitant]
  5. MAG OX [Concomitant]
  6. HEPARIN [Concomitant]
  7. COUMADIN [Concomitant]
  8. TYLENOL W/ CODEINE NO. 3 [Concomitant]

REACTIONS (2)
  - CARDIAC ARREST [None]
  - TORSADE DE POINTES [None]
